FAERS Safety Report 9360438 (Version 1)
Quarter: 2013Q2

REPORT INFORMATION
  Report Type: Spontaneous
  Country: US (occurrence: None)
  Receive Date: 20130620
  Receipt Date: 20130620
  Transmission Date: 20140414
  Serious: Yes (Other)
  Sender: FDA-Public Use
  Company Number: None

PATIENT
  Age: 44 Year
  Sex: Male
  Weight: 69.4 kg

DRUGS (12)
  1. LAMOTRIGINE [Suspect]
     Indication: CONVULSION
     Route: 048
     Dates: start: 20080701, end: 20100901
  2. LAMOTRIGINE [Suspect]
     Indication: BIPOLAR DISORDER
     Route: 048
     Dates: start: 20080701, end: 20100901
  3. COMBIVENT [Concomitant]
  4. PAROXETINE [Concomitant]
  5. SINGULAIR [Concomitant]
  6. REMERON [Concomitant]
  7. SEROQUEL [Concomitant]
  8. SYMBICORT [Concomitant]
  9. NAPROXEN [Concomitant]
  10. LIDEX CREAM [Concomitant]
  11. DILANTIN [Concomitant]
  12. ADDERALL [Concomitant]

REACTIONS (2)
  - Product substitution issue [None]
  - Drug level decreased [None]
